FAERS Safety Report 11216449 (Version 1)
Quarter: 2015Q2

REPORT INFORMATION
  Report Type: Spontaneous
  Country: US (occurrence: None)
  Receive Date: 20150623
  Receipt Date: 20150623
  Transmission Date: 20150821
  Serious: Yes (Other)
  Sender: FDA-Public Use
  Company Number: None

PATIENT
  Age: 73 Year
  Sex: Female
  Weight: 57.15 kg

DRUGS (7)
  1. FAMOTIDINE 40MG [Suspect]
     Active Substance: FAMOTIDINE
     Indication: DYSPEPSIA
     Route: 048
  2. MULTIVITAMIN [Suspect]
     Active Substance: VITAMINS
  3. ALVESCO INHALER [Concomitant]
  4. CALCIUM [Suspect]
     Active Substance: CALCIUM
  5. MINIVELLE PATCH (ESTROGEN) [Concomitant]
  6. ALLERGY EASY SUBLINGUAL DROPS [Concomitant]
  7. VITAMIN D [Concomitant]
     Active Substance: CHOLECALCIFEROL

REACTIONS (3)
  - Weight decreased [None]
  - Alopecia [None]
  - Heart rate increased [None]

NARRATIVE: CASE EVENT DATE: 20150605
